FAERS Safety Report 4327478-6 (Version None)
Quarter: 2004Q1

REPORT INFORMATION
  Report Type: 
  Country: None (occurrence: None)
  Receive Date: 20040325
  Receipt Date: 20040308
  Transmission Date: 20041129
  Serious: Yes (Death, Hospitalization)
  Sender: FDA-Public Use
  Company Number: F01200300642

PATIENT
  Age: 45 Year
  Sex: Female

DRUGS (6)
  1. (OXALIPLATIN) - SOLUTION - 130 MG/M2 [Suspect]
     Indication: LUNG NEOPLASM MALIGNANT
     Dosage: 217 MG Q3W INTRAVENOUS NOS
     Route: 042
     Dates: start: 20030509, end: 20030509
  2. PACLITAXEL [Suspect]
     Dosage: 330 MG Q3W INTRAVENOUS NOS
     Route: 042
     Dates: start: 20030508, end: 20030508
  3. SEVREDOL (MORPHINE SULFATE) [Concomitant]
  4. ACTIQ [Concomitant]
  5. OMEPRAZOLE [Concomitant]
  6. BROMAZEPAM(BROMAZEPAM) [Concomitant]

REACTIONS (13)
  - ANXIETY [None]
  - ASTHENIA [None]
  - BONE PAIN [None]
  - CONSTIPATION [None]
  - DEPRESSED LEVEL OF CONSCIOUSNESS [None]
  - DYSPNOEA [None]
  - HYPERCALCAEMIA [None]
  - METASTASES TO BONE [None]
  - NAUSEA [None]
  - NEUTROPENIC SEPSIS [None]
  - OXYGEN SATURATION DECREASED [None]
  - SOMNOLENCE [None]
  - VOMITING [None]
